FAERS Safety Report 9006691 (Version 2)
Quarter: 2013Q2

REPORT INFORMATION
  Report Type: Spontaneous
  Country: US (occurrence: US)
  Receive Date: 20130110
  Receipt Date: 20130408
  Transmission Date: 20140414
  Serious: Yes (Other)
  Sender: FDA-Public Use
  Company Number: US-BAYER-2013-002866

PATIENT
  Age: 31 Year
  Sex: Female
  Weight: 69 kg

DRUGS (5)
  1. YAZ [Suspect]
  2. YASMIN [Suspect]
  3. OCELLA [Suspect]
  4. GIANVI [Suspect]
  5. PENICILLIN VK [Concomitant]
     Dosage: 250 MG, UNK
     Route: 048
     Dates: start: 20100820, end: 20110125

REACTIONS (7)
  - Deep vein thrombosis [None]
  - Injury [None]
  - Pain [None]
  - Emotional distress [None]
  - Pain [None]
  - Deep vein thrombosis [None]
  - Thrombophlebitis superficial [None]
